FAERS Safety Report 6135354-1 (Version None)
Quarter: 2009Q1

REPORT INFORMATION
  Report Type: 
  Country: None (occurrence: None)
  Receive Date: 20090327
  Receipt Date: 20090317
  Transmission Date: 20090719
  Serious: Yes (Death)
  Sender: FDA-Public Use
  Company Number: US-PFIZER INC-2009187040

PATIENT
  Age: 66 Year
  Sex: Male

DRUGS (1)
  1. AMLODIPINE BESILATE [Suspect]

REACTIONS (1)
  - HEPATIC FAILURE [None]
